FAERS Safety Report 7377610-5 (Version None)
Quarter: 2011Q1

REPORT INFORMATION
  Report Type: 
  Country: None (occurrence: None)
  Receive Date: 20110328
  Receipt Date: 20110321
  Transmission Date: 20110831
  Serious: Yes (Other)
  Sender: FDA-Public Use
  Company Number: US-ALLERGAN-1103980US

PATIENT
  Age: 57 Year
  Sex: Female
  Weight: 67 kg

DRUGS (6)
  1. DIAMOX [Suspect]
     Indication: GLAUCOMA
     Dosage: 500 MG, BID
     Dates: start: 20100301
  2. LISINOPRIL [Concomitant]
     Indication: HYPERTENSION
     Dosage: 40 MG, UNK
  3. CARVEDILOL [Concomitant]
     Indication: HYPERTENSION
     Dosage: 6.25 MG, BID
  4. XALATAN [Suspect]
     Indication: GLAUCOMA
     Dosage: UNK
  5. COMBIGAN[R] [Suspect]
     Indication: GLAUCOMA
     Dosage: UNK
     Dates: start: 20080101
  6. CRESTOR [Concomitant]
     Indication: BLOOD CHOLESTEROL INCREASED
     Dosage: 10 MG, QD

REACTIONS (3)
  - INTRAOCULAR PRESSURE INCREASED [None]
  - LENS DISORDER [None]
  - THERAPEUTIC RESPONSE DECREASED [None]
